FAERS Safety Report 10885218 (Version 1)
Quarter: 2015Q1

REPORT INFORMATION
  Report Type: Report from Study
  Country: GB (occurrence: GB)
  Receive Date: 20150304
  Receipt Date: 20150304
  Transmission Date: 20150721
  Serious: Yes (Hospitalization)
  Sender: FDA-Public Use
  Company Number: GB-SHIRE-GB201501604

PATIENT
  Age: 11 Year
  Sex: Male

DRUGS (3)
  1. IDURSULFASE [Suspect]
     Active Substance: IDURSULFASE
     Dosage: 0.6 MG/KG, 1X/WEEK(ALTERNATING WITH 0.4 MG/KG)
     Route: 041
  2. IDURSULFASE [Suspect]
     Active Substance: IDURSULFASE
     Indication: MUCOPOLYSACCHARIDOSIS II
     Dosage: 0.58 MG/KG, 1X/WEEK
     Route: 041
     Dates: start: 20071227
  3. IDURSULFASE [Suspect]
     Active Substance: IDURSULFASE
     Dosage: 0.4 MG/KG, 1X/WEEK(ALTERNATING WITH 0.6 MG/KG)
     Route: 041

REACTIONS (1)
  - Umbilical hernia [Unknown]

NARRATIVE: CASE EVENT DATE: 201202
